FAERS Safety Report 12850823 (Version 1)
Quarter: 2016Q4

REPORT INFORMATION
  Report Type: Spontaneous
  Country: FR (occurrence: FR)
  Receive Date: 20161014
  Receipt Date: 20161014
  Transmission Date: 20170207
  Serious: Yes (Hospitalization, Other)
  Sender: FDA-Public Use
  Company Number: FR-ASTRAZENECA-2016SF07594

PATIENT
  Age: 32048 Day
  Sex: Female

DRUGS (8)
  1. VANCOMYCINE [Suspect]
     Active Substance: VANCOMYCIN
     Route: 042
     Dates: start: 20160131, end: 20160203
  2. BISOCE [Suspect]
     Active Substance: BISOPROLOL
     Route: 048
     Dates: end: 20160203
  3. LOVENOX [Suspect]
     Active Substance: ENOXAPARIN SODIUM
     Route: 058
     Dates: end: 20160203
  4. PARACETAMOL [Concomitant]
     Active Substance: ACETAMINOPHEN
  5. TRAMADOL. [Concomitant]
     Active Substance: TRAMADOL
  6. ACTRAPID [Concomitant]
     Active Substance: INSULIN HUMAN
  7. INEXIUM [Suspect]
     Active Substance: ESOMEPRAZOLE
     Route: 048
     Dates: end: 20160203
  8. ONDANSETRON [Concomitant]
     Active Substance: ONDANSETRON
     Route: 042

REACTIONS (11)
  - Post procedural haematoma [Unknown]
  - Oxygen saturation decreased [Unknown]
  - Pancytopenia [Recovered/Resolved]
  - Pyrexia [Unknown]
  - Procedural haemorrhage [Unknown]
  - Loss of consciousness [Unknown]
  - Hypoglycaemia [Unknown]
  - Chills [Unknown]
  - Fall [Unknown]
  - Hypotension [Unknown]
  - Confusional state [Unknown]

NARRATIVE: CASE EVENT DATE: 20151127
